FAERS Safety Report 17551039 (Version 1)
Quarter: 2020Q1

REPORT INFORMATION
  Report Type: Spontaneous
  Country: US (occurrence: US)
  Receive Date: 20200309
  Receipt Date: 20200309
  Transmission Date: 20200409
  Serious: Yes (Death)
  Sender: FDA-Public Use
  Company Number: None

PATIENT
  Age: 75 Year
  Sex: Male

DRUGS (1)
  1. OCTREOTIDE INJ 1000MCG [Suspect]
     Active Substance: OCTREOTIDE
     Indication: NEUROENDOCRINE TUMOUR
     Route: 058
     Dates: start: 201702, end: 20200228

REACTIONS (1)
  - Death [None]

NARRATIVE: CASE EVENT DATE: 20200228
